FAERS Safety Report 9853656 (Version 2)
Quarter: 2014Q1

REPORT INFORMATION
  Report Type: Report from Study
  Country: US (occurrence: US)
  Receive Date: 20140129
  Receipt Date: 20140205
  Transmission Date: 20141002
  Serious: Yes (Other)
  Sender: FDA-Public Use
  Company Number: US-PFIZER INC-2014022830

PATIENT
  Age: 21 Year
  Sex: Male

DRUGS (6)
  1. DOXORUBICIN HCL [Suspect]
     Indication: ACUTE LYMPHOCYTIC LEUKAEMIA
     Dosage: 30 MG/M2, EVERY 3 WEEKS
  2. DOXORUBICIN HCL [Interacting]
     Dosage: 15 MG/M2, CYCLIC
  3. DOXORUBICIN HCL [Interacting]
     Dosage: 15 MG/M2, CYCLIC
  4. VINCRISTINE [Concomitant]
     Indication: ACUTE LYMPHOCYTIC LEUKAEMIA
     Dosage: UNK
  5. PREDNISONE [Concomitant]
     Indication: ACUTE LYMPHOCYTIC LEUKAEMIA
     Dosage: UNK
  6. MERCAPTOPURINE [Concomitant]
     Indication: ACUTE LYMPHOCYTIC LEUKAEMIA
     Dosage: UNK

REACTIONS (3)
  - Radiation interaction [Recovered/Resolved]
  - Oesophagitis [Recovered/Resolved]
  - Oesophagitis [Recovered/Resolved]
